FAERS Safety Report 7295891-3 (Version None)
Quarter: 2011Q1

REPORT INFORMATION
  Report Type: 
  Country: None (occurrence: None)
  Receive Date: 20110216
  Receipt Date: 20110122
  Transmission Date: 20110831
  Serious: No
  Sender: FDA-Public Use
  Company Number: US-B.I. PHARMACEUTICALS,INC./RIDGEFIELD-2011-BP-02288BP

PATIENT
  Sex: Female

DRUGS (10)
  1. SYNTHROID [Concomitant]
     Indication: HYPOTHYROIDISM
  2. CHONDROITIN SULFATE [Concomitant]
     Indication: ARTHRITIS
  3. PRADAXA [Suspect]
     Indication: ATRIAL FIBRILLATION
     Dosage: 300 MG
     Route: 048
     Dates: start: 20110114
  4. TRIAMTERENE AND HYDROCHLOROTHIAZIDE [Concomitant]
     Indication: HYPERTENSION
  5. DIGOXIN [Concomitant]
     Indication: CARDIAC DISORDER
  6. TYLENOL (CAPLET) [Concomitant]
     Indication: ARTHRITIS
  7. GLUCOSAMINE HCI [Concomitant]
     Indication: ARTHRITIS
  8. AMLODIPINE [Concomitant]
     Indication: HYPERTENSION
  9. MULTI-VITAMIN [Concomitant]
     Indication: PROPHYLAXIS
  10. AREDS [Concomitant]
     Indication: MACULAR DEGENERATION

REACTIONS (2)
  - VISION BLURRED [None]
  - FEELING ABNORMAL [None]
